FAERS Safety Report 19136479 (Version 3)
Quarter: 2021Q3

REPORT INFORMATION
  Report Type: Report from Study
  Country: None (occurrence: US)
  Receive Date: 20210415
  Receipt Date: 20210718
  Transmission Date: 20211014
  Serious: Yes (Death, Other)
  Sender: FDA-Public Use
  Company Number: US-ABBVIE-21K-163-3849420-00

PATIENT
  Age: 76 Year
  Sex: Male
  Weight: 85 kg

DRUGS (5)
  1. DUOPA [Suspect]
     Active Substance: CARBIDOPA\LEVODOPA
     Route: 050
  2. MORPHINE [Concomitant]
     Active Substance: MORPHINE
     Indication: PAIN
  3. COVID?19 VACCINE [Concomitant]
     Indication: COVID-19 IMMUNISATION
     Dosage: MFR ? PFIZER
     Route: 030
     Dates: start: 202101, end: 202101
  4. DUOPA [Suspect]
     Active Substance: CARBIDOPA\LEVODOPA
     Indication: PARKINSON^S DISEASE
     Route: 050
     Dates: start: 20210105
  5. ATIVAN [Concomitant]
     Active Substance: LORAZEPAM
     Indication: SEDATION

REACTIONS (4)
  - Hypophagia [Unknown]
  - Death [Fatal]
  - Parkinson^s disease [Not Recovered/Not Resolved]
  - Failure to thrive [Not Recovered/Not Resolved]

NARRATIVE: CASE EVENT DATE: 2021
